FAERS Safety Report 9844030 (Version 1)
Quarter: 2013Q4

REPORT INFORMATION
  Report Type: Spontaneous
  Country: US (occurrence: None)
  Receive Date: 20131223
  Receipt Date: 20131223
  Transmission Date: 20140711
  Serious: No
  Sender: FDA-Public Use
  Company Number: 1000048727

PATIENT
  Age: 76 Year
  Sex: Female

DRUGS (7)
  1. LINZESS (LINACLOTIDE) (290 MICROGRAM, CAPSULES) [Suspect]
     Indication: CONSTIPATION
     Dosage: 290MCG (290 MCG, 1 IN 1 D), ORAL
     Route: 048
     Dates: start: 20130827, end: 20130907
  2. ARMOUR THYROID (THYROID) (THYROID) [Concomitant]
  3. HYDROCHLOROTHIAZIDE (HYDROCHLOROTHIAZIDE) (HYDROCHLOROTHIAZIDE) [Concomitant]
  4. KCL (POTASSIUM CHLORIDE) (POTASSIUM CHLORIDE) [Concomitant]
  5. FLUOXETINE (FLUOXETINE) (FLUOXETINE) [Concomitant]
  6. LIPITOR (ATORVASTATIN CALCIUM) (ATORVASTATIN CALCIUM) [Concomitant]
  7. ALDACTONE (SPIRONOLACTONE) [Concomitant]

REACTIONS (2)
  - Nausea [None]
  - Abdominal pain [None]
